FAERS Safety Report 6670243-5 (Version None)
Quarter: 2010Q2

REPORT INFORMATION
  Report Type: 
  Country: None (occurrence: None)
  Receive Date: 20100406
  Receipt Date: 20100316
  Transmission Date: 20101027
  Serious: No
  Sender: FDA-Public Use
  Company Number: US-ALLERGAN-1003513US

PATIENT
  Sex: Female

DRUGS (1)
  1. LATISSE [Suspect]
     Indication: GROWTH OF EYELASHES
     Dosage: UNK
     Dates: start: 20100306, end: 20100313

REACTIONS (4)
  - EYE IRRITATION [None]
  - OCULAR HYPERAEMIA [None]
  - SKIN HYPERPIGMENTATION [None]
  - SWOLLEN TONGUE [None]
